FAERS Safety Report 8143829 (Version 2)
Quarter: 2012Q4

REPORT INFORMATION
  Report Type: 
  Country: AU (occurrence: AU)
  Receive Date: 20110920
  Receipt Date: 20121002
  Transmission Date: 20130627
  Serious: Yes (Hospitalization)
  Sender: FDA-Public Use
  Company Number: AU-B.I. PHARMACEUTICALS,INC./RIDGEFIELD-2011-AU-00900AU

PATIENT
  Age: 73 Year
  Sex: Male
  Weight: 86 kg

DRUGS (9)
  1. PRADAXA [Suspect]
     Indication: ATRIAL FIBRILLATION
     Dosage: 300 mg
     Dates: start: 20110725, end: 20110729
  2. ALLOPURINOL [Concomitant]
     Indication: GOUT
  3. SPIRONOLACTONE [Concomitant]
     Indication: CARDIAC FAILURE CONGESTIVE
  4. PARACETAMOL [Concomitant]
     Indication: NEURALGIA
     Dosage: 1g qid prn
  5. TEMAZEPAM [Concomitant]
     Dosage: 10 mg at night prn
  6. ENALAPRIL [Concomitant]
     Indication: HYPERTENSION
     Dosage: 20/12.5 mg
  7. METFORMIN [Concomitant]
     Indication: TYPE 2 DIABETES MELLITUS
  8. FRUSEMIDE [Concomitant]
     Indication: CARDIAC FAILURE CONGESTIVE
  9. SPIRIVA [Concomitant]
     Indication: CHRONIC OBSTRUCTIVE PULMONARY DISEASE

REACTIONS (3)
  - Sepsis [Unknown]
  - Hallucination [Recovered/Resolved]
  - Epistaxis [Recovered/Resolved]
